FAERS Safety Report 4912414-1 (Version None)
Quarter: 2006Q1

REPORT INFORMATION
  Report Type: 
  Country: None (occurrence: None)
  Receive Date: 20060215
  Receipt Date: 20050309
  Transmission Date: 20060701
  Serious: No
  Sender: FDA-Public Use
  Company Number: US-GLAXOSMITHKLINE-A0549060A

PATIENT
  Age: 60 Year
  Sex: Female

DRUGS (4)
  1. VALTREX [Suspect]
     Indication: MULTIPLE SCLEROSIS
     Dosage: 1G THREE TIMES PER DAY
     Route: 048
     Dates: start: 20050223
  2. AVONEX [Concomitant]
  3. SOLU-MEDROL [Concomitant]
  4. KLONOPIN [Concomitant]

REACTIONS (1)
  - EYE PRURITUS [None]
